FAERS Safety Report 6346987-1 (Version None)
Quarter: 2009Q3

REPORT INFORMATION
  Report Type: 
  Country: None (occurrence: None)
  Receive Date: 20090908
  Receipt Date: 20090908
  Transmission Date: 20100115
  Serious: Yes (Life-Threatening)
  Sender: FDA-Public Use
  Company Number: None

PATIENT
  Age: 56 Year
  Sex: Female

DRUGS (1)
  1. ALBUTEROL WITH HFA  2 PUFFS AS NEEDED GENERIC [Suspect]
     Indication: ASTHMA
     Dosage: 2 PUFFS AS NEEDED DAILY
     Dates: start: 20080101, end: 20090907

REACTIONS (2)
  - DRUG INEFFECTIVE [None]
  - PRODUCT SUBSTITUTION ISSUE [None]
